FAERS Safety Report 20379809 (Version 2)
Quarter: 2022Q1

REPORT INFORMATION
  Report Type: Spontaneous
  Country: US (occurrence: US)
  Receive Date: 20220126
  Receipt Date: 20220307
  Transmission Date: 20220423
  Serious: Yes (Other)
  Sender: FDA-Public Use
  Company Number: US-PFIZER INC-202200063693

PATIENT
  Age: 18 Year
  Sex: Male

DRUGS (2)
  1. INOTUZUMAB OZOGAMICIN [Suspect]
     Active Substance: INOTUZUMAB OZOGAMICIN
     Dosage: UNK
  2. PEGASPARGASE [Suspect]
     Active Substance: PEGASPARGASE
     Dosage: UNK

REACTIONS (4)
  - Pancreatitis [Unknown]
  - Upper gastrointestinal haemorrhage [Unknown]
  - Infection [Unknown]
  - Metabolic disorder [Unknown]
